FAERS Safety Report 21718508 (Version 2)
Quarter: 2023Q2

REPORT INFORMATION
  Report Type: Spontaneous
  Country: JP (occurrence: JP)
  Receive Date: 20221212
  Receipt Date: 20230407
  Transmission Date: 20230721
  Serious: Yes (Hospitalization)
  Sender: FDA-Public Use
  Company Number: JP-DSJP-DSJ-2022-143792

PATIENT
  Age: 80 Year
  Sex: Female

DRUGS (4)
  1. DENOSUMAB [Suspect]
     Active Substance: DENOSUMAB
     Indication: Metastases to bone
     Dosage: 120 MILLIGRAM, Q4WK
     Route: 058
     Dates: start: 20170801, end: 20220801
  2. BONALON [Suspect]
     Active Substance: ALENDRONATE SODIUM
     Indication: Product used for unknown indication
     Dosage: 35 MILLIGRAM, QWK
     Route: 065
     Dates: start: 20170801, end: 20220801
  3. TRULICITY [Concomitant]
     Active Substance: DULAGLUTIDE
     Indication: Diabetes mellitus
     Dosage: 0.75 MILLIGRAM, QWK
     Route: 058
  4. MITIGLINIDE [Concomitant]
     Active Substance: MITIGLINIDE
     Indication: Diabetes mellitus
     Dosage: 10 MILLIGRAM, TID
     Route: 048

REACTIONS (2)
  - Atypical fracture [Unknown]
  - Fall [Unknown]

NARRATIVE: CASE EVENT DATE: 20221001
